FAERS Safety Report 9508657 (Version 2)
Quarter: 2013Q4

REPORT INFORMATION
  Report Type: Report from Study
  Country: DE (occurrence: DE)
  Receive Date: 20130909
  Receipt Date: 20131114
  Transmission Date: 20140711
  Serious: Yes (Hospitalization)
  Sender: FDA-Public Use
  Company Number: DE-INCYTE CORPORATION-2013IN001994

PATIENT
  Sex: Female
  Weight: 62 kg

DRUGS (6)
  1. INCB018424 [Suspect]
     Indication: MYELOFIBROSIS
     Dosage: 30 MG, QD
     Route: 048
     Dates: start: 20130524, end: 20130613
  2. INCB018424 [Suspect]
     Dosage: 10 MG, QD
     Route: 048
     Dates: start: 20130617, end: 20130619
  3. VOTUM/GFR [Concomitant]
  4. VERAPAMIL [Concomitant]
  5. XARELTO [Concomitant]
  6. HCT [Concomitant]

REACTIONS (2)
  - Pulmonary embolism [Recovered/Resolved]
  - Deep vein thrombosis [Recovered/Resolved]
